FAERS Safety Report 8259713-6 (Version None)
Quarter: 2012Q2

REPORT INFORMATION
  Report Type: 
  Country: None (occurrence: None)
  Receive Date: 20120404
  Receipt Date: 20120328
  Transmission Date: 20120825
  Serious: Yes (Hospitalization)
  Sender: FDA-Public Use
  Company Number: US-ASTRAZENECA-2011SE06573

PATIENT
  Age: 62 Year
  Sex: Female

DRUGS (4)
  1. SEROQUEL XR [Suspect]
     Route: 048
  2. SEROQUEL XR [Suspect]
     Route: 048
  3. SEROQUEL XR [Suspect]
     Route: 048
  4. CRESTOR [Suspect]
     Route: 048

REACTIONS (5)
  - NERVOUSNESS [None]
  - MOVEMENT DISORDER [None]
  - INTENTIONAL DRUG MISUSE [None]
  - FALL [None]
  - MALNUTRITION [None]
